FAERS Safety Report 8095038-X (Version None)
Quarter: 2012Q1

REPORT INFORMATION
  Report Type: 
  Country: None (occurrence: None)
  Receive Date: 20120131
  Receipt Date: 20120131
  Transmission Date: 20120608
  Serious: Yes (Other)
  Sender: FDA-Public Use
  Company Number: None

PATIENT
  Age: 59 Year
  Sex: Male
  Weight: 123 kg

DRUGS (13)
  1. THIAMINE HCL [Concomitant]
     Route: 048
  2. FERROUS SULFATE TAB [Concomitant]
     Route: 048
  3. POLYETHYLENE GLYCOL [Concomitant]
     Route: 048
  4. CEPHALEXIN [Concomitant]
     Route: 048
  5. FUROSEMIDE [Concomitant]
     Route: 042
  6. FOLIC ACID [Concomitant]
     Route: 048
  7. LORAZEPAM [Suspect]
     Indication: ALCOHOL WITHDRAWAL SYNDROME
     Dosage: 2 MG
     Route: 040
     Dates: start: 20111112, end: 20111113
  8. PANTOPRAZOLE [Concomitant]
     Route: 048
  9. QUETIAPINE [Concomitant]
     Route: 048
  10. OXYBUTYNIN [Concomitant]
     Route: 048
  11. MECLIZINE [Concomitant]
     Route: 048
  12. LISINOPRIL [Concomitant]
     Route: 048
  13. SPIRONOLACTONE [Concomitant]
     Route: 048

REACTIONS (5)
  - GENERALISED OEDEMA [None]
  - ANAEMIA [None]
  - ENCEPHALOPATHY [None]
  - DYSPNOEA [None]
  - ALCOHOLIC PSYCHOSIS [None]
